FAERS Safety Report 5031473-1 (Version None)
Quarter: 2006Q2

REPORT INFORMATION
  Report Type: 
  Country: None (occurrence: None)
  Receive Date: 20060621
  Receipt Date: 20060524
  Transmission Date: 20061013
  Serious: Yes (Hospitalization)
  Sender: FDA-Public Use
  Company Number: PHBS2006TR07680

PATIENT
  Age: 48 Year
  Sex: Male
  Weight: 110 kg

DRUGS (11)
  1. STEROIDS NOS [Concomitant]
     Dosage: SHORT-ACTING DEPOT
  2. LORATADINE [Concomitant]
  3. KARVEA [Concomitant]
  4. ALCOHOL [Concomitant]
     Dates: start: 20060101
  5. NOOTROPIL [Concomitant]
  6. PLAVIX [Concomitant]
  7. CLARITIN [Concomitant]
  8. ATARAX [Concomitant]
     Dosage: UNK, PRN
  9. SANDIMMUNE [Suspect]
     Indication: URTICARIA CHRONIC
     Dosage: 4-3 MG/KG/D
     Route: 065
     Dates: start: 20050926, end: 20060201
  10. SANDIMMUNE [Suspect]
     Dosage: 3 MG/KG/DAY
     Route: 065
     Dates: start: 20060301
  11. ANTIHYPERTENSIVES [Concomitant]
     Indication: HYPERTENSION

REACTIONS (3)
  - CEREBELLAR ARTERY OCCLUSION [None]
  - CEREBELLAR INFARCTION [None]
  - CEREBRAL ISCHAEMIA [None]
